FAERS Safety Report 6703516-8 (Version None)
Quarter: 2010Q2

REPORT INFORMATION
  Report Type: 
  Country: None (occurrence: None)
  Receive Date: 20100430
  Receipt Date: 20100419
  Transmission Date: 20101027
  Serious: Yes (Disabling, Other)
  Sender: FDA-Public Use
  Company Number: PHHY2010FR24558

PATIENT
  Age: 88 Year
  Sex: Female

DRUGS (1)
  1. GLEEVEC [Suspect]
     Indication: CHRONIC MYELOID LEUKAEMIA
     Dosage: 400 MG, QD
     Dates: start: 20051001

REACTIONS (4)
  - BREAST CANCER [None]
  - NEOPLASM MALIGNANT [None]
  - SALIVARY GLAND ADENOMA [None]
  - SURGERY [None]
